FAERS Safety Report 7555318-0 (Version None)
Quarter: 2011Q2

REPORT INFORMATION
  Report Type: 
  Country: None (occurrence: None)
  Receive Date: 20110617
  Receipt Date: 20110606
  Transmission Date: 20111010
  Serious: Yes (Hospitalization)
  Sender: FDA-Public Use
  Company Number: PHHY2011CA50571

PATIENT
  Sex: Female

DRUGS (1)
  1. SANDOSTATIN LAR [Suspect]
     Indication: GANGLIONEUROMA
     Dosage: 30 MG, QMO
     Route: 030
     Dates: start: 20110517

REACTIONS (3)
  - BLOOD POTASSIUM DECREASED [None]
  - PALPITATIONS [None]
  - HYPOTENSION [None]
